FAERS Safety Report 16576995 (Version 2)
Quarter: 2019Q3

REPORT INFORMATION
  Report Type: Spontaneous
  Country: US (occurrence: US)
  Receive Date: 20190716
  Receipt Date: 20190725
  Transmission Date: 20191004
  Serious: No
  Sender: FDA-Public Use
  Company Number: US-HORIZON-KRY-0494-2019

PATIENT
  Age: 73 Year
  Sex: Female

DRUGS (3)
  1. KRYSTEXXA [Suspect]
     Active Substance: PEGLOTICASE
     Indication: PRODUCT USED FOR UNKNOWN INDICATION
  2. CLARITIN [Concomitant]
     Active Substance: LORATADINE
  3. PREDNISONE. [Concomitant]
     Active Substance: PREDNISONE

REACTIONS (9)
  - Hyperhidrosis [Recovering/Resolving]
  - Malaise [Recovering/Resolving]
  - Feeling abnormal [Not Recovered/Not Resolved]
  - Feeling hot [Recovering/Resolving]
  - Flushing [Not Recovered/Not Resolved]
  - Asthenia [Recovering/Resolving]
  - Blood pressure increased [Recovering/Resolving]
  - Headache [Recovering/Resolving]
  - Fatigue [Recovering/Resolving]
